FAERS Safety Report 4476739-9 (Version None)
Quarter: 2004Q4

REPORT INFORMATION
  Report Type: 
  Country: None (occurrence: None)
  Receive Date: 20041013
  Receipt Date: 20040927
  Transmission Date: 20050328
  Serious: Yes (Other)
  Sender: FDA-Public Use
  Company Number: US_0405103168

PATIENT
  Age: 56 Year
  Sex: Female

DRUGS (6)
  1. EVISTA [Suspect]
     Indication: OSTEOPOROSIS
     Dosage: 60 MG/1 DAY
     Dates: start: 20020901, end: 20040501
  2. ACTONEL [Concomitant]
  3. THYROID TAB [Concomitant]
  4. CALCIUM AND VITAMIN D [Concomitant]
  5. MULTIVITAMIN [Concomitant]
  6. VITAMIN E [Concomitant]

REACTIONS (4)
  - BONE DENSITY DECREASED [None]
  - DRUG INEFFECTIVE [None]
  - OSTEOPOROTIC FRACTURE [None]
  - PELVIC FRACTURE [None]
